FAERS Safety Report 13960509 (Version 1)
Quarter: 2017Q3

REPORT INFORMATION
  Report Type: Spontaneous
  Country: US (occurrence: US)
  Receive Date: 20170912
  Receipt Date: 20170912
  Transmission Date: 20171128
  Serious: No
  Sender: FDA-Public Use
  Company Number: US-FRI-1000087003

PATIENT
  Sex: Female
  Weight: 65.77 kg

DRUGS (4)
  1. ZOLOFT [Concomitant]
     Active Substance: SERTRALINE HYDROCHLORIDE
     Indication: DEPRESSION
     Dosage: 25 MG, QD
     Route: 048
     Dates: start: 20160812
  2. XANAX [Concomitant]
     Active Substance: ALPRAZOLAM
     Indication: ANXIOLYTIC THERAPY
     Dosage: .25 MG, QD
     Route: 048
     Dates: start: 2016
  3. LEXAPRO [Suspect]
     Active Substance: ESCITALOPRAM OXALATE
     Indication: DEPRESSION
     Dosage: 20 MG, QD
     Route: 048
     Dates: start: 2000
  4. BIO-IDENTICAL PROGESTERONE [Concomitant]
     Indication: MENOPAUSE
     Dosage: 100 MG, BID
     Dates: start: 2009

REACTIONS (2)
  - Therapeutic response shortened [Unknown]
  - Depression [Unknown]
